FAERS Safety Report 26076937 (Version 1)
Quarter: 2025Q4

REPORT INFORMATION
  Report Type: Spontaneous
  Country: EU (occurrence: EU)
  Receive Date: 20251121
  Receipt Date: 20251121
  Transmission Date: 20260118
  Serious: Yes (Death, Other)
  Sender: GALPHARM INTERNATIONAL
  Company Number: EU-PERRIGO-25FR013100

PATIENT
  Age: 61 Year
  Sex: Female

DRUGS (1)
  1. ACETAMINOPHEN [Suspect]
     Active Substance: ACETAMINOPHEN
     Indication: Product used for unknown indication
     Dosage: 500 MG, AT LEAST 350 CAPSULE SHELLS
     Route: 048

REACTIONS (3)
  - Bezoar [Fatal]
  - Suicidal ideation [Fatal]
  - Toxicity to various agents [Fatal]
